FAERS Safety Report 8740199 (Version 5)
Quarter: 2013Q2

REPORT INFORMATION
  Report Type: Spontaneous
  Country: US (occurrence: US)
  Receive Date: 20120823
  Receipt Date: 20130417
  Transmission Date: 20140414
  Serious: Yes (Disabling, Other)
  Sender: FDA-Public Use
  Company Number: US-009507513-1204USA00782

PATIENT
  Sex: Female
  Weight: 61.68 kg

DRUGS (3)
  1. FOSAMAX [Suspect]
     Indication: OSTEOPOROSIS
     Dosage: 70 MG, QW
     Route: 048
     Dates: start: 20030718, end: 201104
  2. FOSAMAX [Suspect]
     Indication: OSTEOPENIA
  3. FOSAMAX [Suspect]
     Indication: OSTEOPOROSIS
     Dosage: UNK
     Route: 048

REACTIONS (18)
  - Osteonecrosis of jaw [Not Recovered/Not Resolved]
  - Oral cavity fistula [Not Recovered/Not Resolved]
  - Sinusitis [Unknown]
  - Arrhythmia [Unknown]
  - Hypertension [Unknown]
  - Jaw fracture [Unknown]
  - Dental caries [Unknown]
  - Oral disorder [Unknown]
  - Fistula discharge [Unknown]
  - Hypercholesterolaemia [Unknown]
  - Abscess oral [Unknown]
  - Osteoarthritis [Unknown]
  - Scoliosis [Unknown]
  - Subcutaneous abscess [Unknown]
  - Tooth extraction [Unknown]
  - Tooth extraction [Unknown]
  - Cardiac disorder [Unknown]
  - Drug ineffective [Unknown]
